FAERS Safety Report 8881738 (Version 2)
Quarter: 2013Q2

REPORT INFORMATION
  Report Type: Spontaneous
  Country: US (occurrence: None)
  Receive Date: 20120502
  Receipt Date: 20121227
  Transmission Date: 20140414
  Serious: Yes (Hospitalization)
  Sender: FDA-Public Use
  Company Number: PHHY2010US75535

PATIENT
  Sex: Male

DRUGS (1)
  1. MYFORTIC (MYCOPHENOLIC ACID) TABLET [Suspect]

REACTIONS (1)
  - Dizziness [None]
